FAERS Safety Report 15948241 (Version 13)
Quarter: 2019Q2

REPORT INFORMATION
  Report Type: Report from Study
  Country: JP (occurrence: JP)
  Receive Date: 20190212
  Receipt Date: 20190617
  Transmission Date: 20190711
  Serious: Yes (Death, Hospitalization, Other)
  Sender: FDA-Public Use
  Company Number: JP-ROCHE-2261189

PATIENT
  Age: 45 Year
  Sex: Female
  Weight: 57.1 kg

DRUGS (29)
  1. POLARAMINE [Concomitant]
     Active Substance: DEXCHLORPHENIRAMINE MALEATE
     Indication: PROPHYLAXIS
     Route: 065
     Dates: start: 20180626
  2. PARIET [Concomitant]
     Active Substance: RABEPRAZOLE SODIUM
     Route: 065
     Dates: start: 20190204, end: 20190228
  3. HALOPERIDOL. [Concomitant]
     Active Substance: HALOPERIDOL
     Route: 065
     Dates: start: 20190225, end: 20190225
  4. DENOTAS [Concomitant]
     Active Substance: CALCIUM CARBONATE\CHOLECALCIFEROL\MAGNESIUM CARBONATE
     Route: 065
     Dates: start: 20180703, end: 20190219
  5. LASIX [Concomitant]
     Active Substance: FUROSEMIDE
     Route: 065
     Dates: start: 20181030, end: 20190107
  6. NOVAMIN [PROCHLORPERAZINE] [Concomitant]
     Route: 065
     Dates: start: 20190214, end: 20190227
  7. OXIFAST [Concomitant]
     Active Substance: OXYCODONE
     Route: 065
     Dates: start: 20190225, end: 20190227
  8. RITUXAN [Concomitant]
     Active Substance: RITUXIMAB
     Route: 041
     Dates: start: 20190225, end: 20190225
  9. NOVAMIN [PROCHLORPERAZINE] [Concomitant]
     Route: 065
     Dates: start: 20190210, end: 20190217
  10. NOVAMIN [PROCHLORPERAZINE] [Concomitant]
     Route: 065
     Dates: start: 20190208, end: 20190209
  11. ATEZOLIZUMAB. [Suspect]
     Active Substance: ATEZOLIZUMAB
     Indication: TRIPLE NEGATIVE BREAST CANCER
     Dosage: ON 25/DEC/2018, MOST RECENT DOSE OF ATEZOLIZUMAB PRIOR TO SAE AND AE ONSET.
     Route: 042
     Dates: start: 20180626
  12. SILECE [Concomitant]
     Active Substance: FLUNITRAZEPAM
     Route: 065
     Dates: start: 20190225, end: 20190225
  13. PACLITAXEL. [Suspect]
     Active Substance: PACLITAXEL
     Indication: TRIPLE NEGATIVE BREAST CANCER
     Dosage: DATE OF MOST RECENT DOSE OF PACLITAXEL PRIOR TO THE ONSET OF POLYMYOSITIS AND BICYTOPENIA: 25/DEC/20
     Route: 042
     Dates: start: 20180626
  14. BROTIZOLAM [Concomitant]
     Active Substance: BROTIZOLAM
     Indication: INSOMNIA
     Route: 065
     Dates: start: 20181120
  15. KYTRIL [Concomitant]
     Active Substance: GRANISETRON HYDROCHLORIDE
     Indication: PROPHYLAXIS
     Route: 065
     Dates: start: 20180626, end: 20181225
  16. RANMARK [Concomitant]
     Active Substance: DENOSUMAB
     Route: 058
     Dates: start: 20180703
  17. URSODEOXYCHOLIC ACID [Concomitant]
     Active Substance: URSODIOL
     Route: 065
     Dates: start: 20181030
  18. MORPHINE HYDROCHLORIDE [Concomitant]
     Active Substance: MORPHINE HYDROCHLORIDE
     Route: 065
     Dates: start: 20190223, end: 20190225
  19. MORPHINE HYDROCHLORIDE [Concomitant]
     Active Substance: MORPHINE HYDROCHLORIDE
     Route: 065
     Dates: start: 20190208, end: 20190220
  20. KN NO.1 [Concomitant]
     Indication: PROPHYLAXIS
     Route: 065
     Dates: start: 20190210, end: 20190210
  21. TAKEPRON [Concomitant]
     Active Substance: LANSOPRAZOLE
     Indication: PROPHYLAXIS
     Route: 065
     Dates: start: 20190220, end: 20190227
  22. LASIX [Concomitant]
     Active Substance: FUROSEMIDE
     Route: 065
     Dates: start: 20190219, end: 20190227
  23. STRONG RESTAMIN CORTISONE [Concomitant]
     Route: 065
     Dates: start: 20180918
  24. BAKTAR [Concomitant]
     Active Substance: SULFAMETHOXAZOLE\TRIMETHOPRIM
     Indication: PROPHYLAXIS
     Route: 065
     Dates: start: 20190205, end: 20190227
  25. NOVAMIN [PROCHLORPERAZINE] [Concomitant]
     Indication: PROPHYLAXIS
     Route: 065
     Dates: start: 20190210, end: 20190217
  26. CONTOMIN [Concomitant]
     Active Substance: CHLORPROMAZINE
     Route: 030
     Dates: start: 20190220, end: 20190226
  27. FLUMETHOLON [Concomitant]
     Active Substance: FLUOROMETHOLONE
     Route: 065
     Dates: start: 20190220, end: 20190227
  28. NAUZELIN [Concomitant]
     Active Substance: DOMPERIDONE
     Route: 065
     Dates: start: 20190220, end: 20190227
  29. SENIRAN [Concomitant]
     Active Substance: BROMAZEPAM
     Route: 065
     Dates: start: 20190220, end: 20190227

REACTIONS (3)
  - Orbital myositis [Not Recovered/Not Resolved]
  - Polymyositis [Fatal]
  - Bicytopenia [Not Recovered/Not Resolved]

NARRATIVE: CASE EVENT DATE: 20190115
